FAERS Safety Report 8579122-X (Version None)
Quarter: 2012Q3

REPORT INFORMATION
  Report Type: 
  Country: None (occurrence: None)
  Receive Date: 20120808
  Receipt Date: 20120731
  Transmission Date: 20120928
  Serious: No
  Sender: FDA-Public Use
  Company Number: US-ASTRAZENECA-2012SE54073

PATIENT

DRUGS (1)
  1. VIMOVO [Suspect]
     Dosage: 500/20 TWO TIMES A DAY
     Route: 048

REACTIONS (1)
  - PAIN [None]
